FAERS Safety Report 7313198-2 (Version None)
Quarter: 2011Q1

REPORT INFORMATION
  Report Type: 
  Country: None (occurrence: None)
  Receive Date: 20110225
  Receipt Date: 20110215
  Transmission Date: 20110831
  Serious: Yes (Hospitalization)
  Sender: FDA-Public Use
  Company Number: DK-JNJFOC-20110201262

PATIENT
  Sex: Female
  Weight: 39 kg

DRUGS (26)
  1. RITUXIMAB [Suspect]
     Dosage: CYCLE 4
     Route: 042
  2. ALLOPURINOL [Concomitant]
     Indication: PROPHYLAXIS
     Route: 048
  3. CAELYX [Suspect]
     Dosage: CYCLE 3
     Route: 042
  4. NEUPOGEN [Suspect]
     Indication: DIFFUSE LARGE B-CELL LYMPHOMA
     Route: 058
  5. PREDNISONE [Suspect]
     Dosage: CYCLE 3
     Route: 048
  6. RITUXIMAB [Suspect]
     Dosage: CYCLE 3
     Route: 042
  7. CAELYX [Suspect]
     Indication: DIFFUSE LARGE B-CELL LYMPHOMA
     Dosage: CYCLE 2
     Route: 042
  8. CAELYX [Suspect]
     Dosage: CYCLE 1
     Route: 042
  9. CYCLOPHOSPHAMIDE [Suspect]
     Dosage: CYCLE 3
     Route: 042
  10. PREDNISONE [Suspect]
     Indication: DIFFUSE LARGE B-CELL LYMPHOMA
     Dosage: CYCLE 2
     Route: 048
  11. PREDNISONE [Suspect]
     Dosage: CYCLE 4
     Route: 048
  12. NEUPOGEN [Suspect]
     Route: 058
  13. CYCLOPHOSPHAMIDE [Suspect]
     Dosage: CYCLE 4
     Route: 042
  14. CYCLOPHOSPHAMIDE [Suspect]
     Dosage: CYCLE 1
     Route: 042
  15. NEUPOGEN [Suspect]
     Dosage: CYCLE 3
     Route: 058
  16. NEUPOGEN [Suspect]
     Dosage: CYCLE 2
     Route: 058
  17. PREDNISONE [Suspect]
     Dosage: CYCLE 1
     Route: 048
  18. RITUXIMAB [Suspect]
     Dosage: CYCLE 1
     Route: 042
  19. VINCRISTINE [Suspect]
     Dosage: CYCLE 2
     Route: 042
  20. CAELYX [Suspect]
     Dosage: CYCLE 4
     Route: 042
  21. CYCLOPHOSPHAMIDE [Suspect]
     Indication: DIFFUSE LARGE B-CELL LYMPHOMA
     Dosage: CYCLE 2
     Route: 042
  22. NEUPOGEN [Suspect]
     Dosage: CYCLE 1
     Route: 058
  23. VINCRISTINE [Suspect]
     Indication: DIFFUSE LARGE B-CELL LYMPHOMA
     Dosage: CYCLE 1
     Route: 042
  24. RITUXIMAB [Suspect]
     Indication: DIFFUSE LARGE B-CELL LYMPHOMA
     Dosage: CYCLE 2
     Route: 042
  25. VINCRISTINE [Suspect]
     Dosage: CYCLE 4
     Route: 042
  26. VINCRISTINE [Suspect]
     Dosage: CYCLE 3
     Route: 042

REACTIONS (5)
  - DIARRHOEA [None]
  - ANAEMIA [None]
  - CONFUSIONAL STATE [None]
  - MEMORY IMPAIRMENT [None]
  - DEHYDRATION [None]
